FAERS Safety Report 21788884 (Version 2)
Quarter: 2023Q1

REPORT INFORMATION
  Report Type: Report from Study
  Country: GB (occurrence: GB)
  Receive Date: 20221228
  Receipt Date: 20230117
  Transmission Date: 20230418
  Serious: Yes (Hospitalization)
  Sender: FDA-Public Use
  Company Number: GB-ROCHE-2345203

PATIENT
  Age: 74 Year
  Sex: Female

DRUGS (2)
  1. TRASTUZUMAB [Suspect]
     Active Substance: TRASTUZUMAB
     Indication: Breast cancer metastatic
     Dosage: 600 MG, Q3W, SOLUTION FOR INJECTION
     Route: 058
     Dates: start: 20170724, end: 20181009
  2. METOCLOPRAMIDE [Concomitant]
     Active Substance: METOCLOPRAMIDE
     Indication: Nausea
     Dosage: 10 MILLIGRAM, QD
     Route: 065
     Dates: start: 201707

REACTIONS (1)
  - Multiple fractures [Not Recovered/Not Resolved]

NARRATIVE: CASE EVENT DATE: 20181029
